FAERS Safety Report 13624046 (Version 1)
Quarter: 2017Q2

REPORT INFORMATION
  Report Type: Spontaneous
  Country: US (occurrence: US)
  Receive Date: 20170607
  Receipt Date: 20170607
  Transmission Date: 20170830
  Serious: No
  Sender: FDA-Public Use
  Company Number: US-PURDUE-USA-2016-0135017

PATIENT
  Age: 70 Year
  Sex: Male

DRUGS (2)
  1. BUTRANS [Suspect]
     Active Substance: BUPRENORPHINE
     Indication: BACK PAIN
     Dosage: 15 MCG/HR, WEEKLY
     Route: 062
     Dates: start: 2016
  2. BUTRANS [Suspect]
     Active Substance: BUPRENORPHINE
     Indication: SPINAL OPERATION

REACTIONS (3)
  - Application site erythema [Unknown]
  - Application site pruritus [Unknown]
  - Application site vesicles [Unknown]

NARRATIVE: CASE EVENT DATE: 20161123
